FAERS Safety Report 6371226-5 (Version None)
Quarter: 2009Q3

REPORT INFORMATION
  Report Type: 
  Country: None (occurrence: None)
  Receive Date: 20090923
  Receipt Date: 20070515
  Transmission Date: 20100115
  Serious: Yes (Hospitalization, Other)
  Sender: FDA-Public Use
  Company Number: US-ASTRAZENECA-2006UW27524

PATIENT
  Age: 44 Year
  Sex: Female
  Weight: 59.9 kg

DRUGS (27)
  1. SEROQUEL [Suspect]
     Indication: DEPRESSION
     Route: 048
     Dates: start: 20030101, end: 20040101
  2. SEROQUEL [Suspect]
     Indication: MAJOR DEPRESSION
     Route: 048
     Dates: start: 20030101, end: 20040101
  3. SEROQUEL [Suspect]
     Indication: SCHIZOAFFECTIVE DISORDER
     Route: 048
     Dates: start: 20030101, end: 20040101
  4. SEROQUEL [Suspect]
     Dosage: 100 MG-900 MG
     Route: 048
     Dates: start: 20020612
  5. SEROQUEL [Suspect]
     Dosage: 100 MG-900 MG
     Route: 048
     Dates: start: 20020612
  6. SEROQUEL [Suspect]
     Dosage: 100 MG-900 MG
     Route: 048
     Dates: start: 20020612
  7. ABILIFY [Concomitant]
  8. HALDOL [Concomitant]
  9. STELAZINE [Concomitant]
  10. ZYPREXA [Concomitant]
     Indication: MAJOR DEPRESSION
     Dosage: 7.5-15 MG
     Route: 048
     Dates: start: 20040821
  11. GEODON [Concomitant]
     Dates: start: 20060901
  12. RISPERDAL [Concomitant]
     Dates: start: 20060801, end: 20060901
  13. ASPIRIN [Concomitant]
     Dosage: 81-325 MG
     Route: 048
     Dates: start: 20050915
  14. AVANDIA [Concomitant]
     Dates: start: 20060308
  15. GEMFIBROZIL [Concomitant]
     Route: 048
     Dates: start: 20051121
  16. EFFEXOR XR [Concomitant]
     Indication: SCHIZOAFFECTIVE DISORDER
     Dosage: 75-300 MG
     Route: 048
     Dates: start: 20020819
  17. EFFEXOR XR [Concomitant]
     Indication: MAJOR DEPRESSION
     Dosage: 75-300 MG
     Route: 048
     Dates: start: 20020819
  18. TRAZODONE [Concomitant]
     Route: 048
     Dates: start: 20031209
  19. METFORMIN HCL [Concomitant]
     Indication: DIABETES MELLITUS
     Dosage: 100-2000 MG
     Route: 048
     Dates: start: 20050822
  20. ZOCOR [Concomitant]
     Route: 048
     Dates: start: 20050926
  21. TEMAZEPAM [Concomitant]
     Route: 048
     Dates: start: 20050105
  22. CLONAZEPAM [Concomitant]
     Route: 048
     Dates: start: 20050324
  23. WELLBUTRIN SR [Concomitant]
     Indication: SCHIZOAFFECTIVE DISORDER
     Dosage: 100-150 MG
     Route: 048
     Dates: start: 20020503
  24. SERZONE [Concomitant]
     Indication: MAJOR DEPRESSION
     Dosage: 100-200 MG
     Route: 048
     Dates: start: 20000617
  25. SERZONE [Concomitant]
     Indication: DEPRESSION
     Dosage: 100-200 MG
     Route: 048
     Dates: start: 20000617
  26. AMITRIPTYLINE [Concomitant]
     Dosage: 25-50 MG
     Route: 048
     Dates: start: 20030114
  27. GLIPIZIDE [Concomitant]
     Indication: DIABETES MELLITUS
     Dates: start: 20060428

REACTIONS (5)
  - DIABETES MELLITUS [None]
  - DIABETES MELLITUS INADEQUATE CONTROL [None]
  - DIABETIC KETOACIDOSIS [None]
  - HYPERGLYCAEMIA [None]
  - TARDIVE DYSKINESIA [None]
